FAERS Safety Report 16638953 (Version 1)
Quarter: 2019Q3

REPORT INFORMATION
  Report Type: Report from Study
  Country: TH (occurrence: TH)
  Receive Date: 20190726
  Receipt Date: 20190726
  Transmission Date: 20191004
  Serious: Yes (Other)
  Sender: FDA-Public Use
  Company Number: TH-TAKEDA-2019TUS045323

PATIENT
  Age: 36 Year
  Sex: Female

DRUGS (2)
  1. DARZALEX [Suspect]
     Active Substance: DARATUMUMAB
     Indication: PLASMA CELL MYELOMA
     Dosage: 1080 MILLIGRAM
     Route: 065
     Dates: start: 20190327, end: 20190619
  2. BORTEZOMIB. [Suspect]
     Active Substance: BORTEZOMIB
     Indication: PLASMA CELL MYELOMA
     Dosage: 2.3 MILLIGRAM, QD
     Route: 065
     Dates: start: 20190327, end: 20190629

REACTIONS (3)
  - Off label use [Unknown]
  - Plasma cell myeloma [Unknown]
  - Product use issue [Unknown]
